FAERS Safety Report 4729346-4 (Version None)
Quarter: 2005Q3

REPORT INFORMATION
  Report Type: 
  Country: None (occurrence: None)
  Receive Date: 20050729
  Receipt Date: 20050720
  Transmission Date: 20060218
  Serious: Yes (Death)
  Sender: FDA-Public Use
  Company Number: US-BRISTOL-MYERS SQUIBB COMPANY-13047402

PATIENT
  Sex: Male

DRUGS (1)
  1. DOVONEX [Suspect]

REACTIONS (1)
  - DEATH [None]
